FAERS Safety Report 14940043 (Version 1)
Quarter: 2018Q2

REPORT INFORMATION
  Report Type: Spontaneous
  Country: IT (occurrence: IT)
  Receive Date: 20180525
  Receipt Date: 20180525
  Transmission Date: 20180711
  Serious: Yes (Life-Threatening)
  Sender: FDA-Public Use
  Company Number: IT-PFIZER INC-2018213744

PATIENT
  Age: 63 Year
  Sex: Female
  Weight: 78 kg

DRUGS (4)
  1. ROCURONIO KABI [Suspect]
     Active Substance: ROCURONIUM BROMIDE
     Indication: ANAESTHESIA
     Dosage: 50 MG, UNK
     Route: 042
     Dates: start: 20180308, end: 20180308
  2. FENTANEST /00174601/ [Suspect]
     Active Substance: FENTANYL CITRATE
     Indication: ANAESTHESIA
     Dosage: 200 UG, UNK
     Route: 042
     Dates: start: 20180308, end: 20180308
  3. PROPOFOL. [Suspect]
     Active Substance: PROPOFOL
     Indication: ANAESTHESIA
     Dosage: 120 MG, UNK
     Route: 042
     Dates: start: 20180308, end: 20180308
  4. MIDAZOLAM ACCORD [Concomitant]
     Indication: ANAESTHESIA
     Dosage: 2 MG, UNK
     Route: 042

REACTIONS (1)
  - Anaphylactic shock [Recovered/Resolved]

NARRATIVE: CASE EVENT DATE: 20180308
